FAERS Safety Report 10242311 (Version 1)
Quarter: 2014Q2

REPORT INFORMATION
  Report Type: Spontaneous
  Country: US (occurrence: US)
  Receive Date: 20140617
  Receipt Date: 20140617
  Transmission Date: 20141212
  Serious: Yes (Hospitalization)
  Sender: FDA-Public Use
  Company Number: US-BAYER-2014-089374

PATIENT
  Age: 29 Year
  Sex: Female
  Weight: 89.34 kg

DRUGS (16)
  1. OCELLA [Suspect]
  2. YASMIN [Suspect]
  3. APIDRA [Concomitant]
  4. SULFAMETHOXAZOLE [Concomitant]
  5. INSULIN [Concomitant]
     Indication: TYPE 1 DIABETES MELLITUS
  6. NUVIGIL [Concomitant]
     Indication: CENTRAL NERVOUS SYSTEM STIMULATION
  7. BUPROPION [Concomitant]
     Indication: AFFECTIVE DISORDER
  8. WELLBUTRIN [Concomitant]
     Indication: AFFECTIVE DISORDER
  9. PRISTIQ [Concomitant]
     Indication: AFFECTIVE DISORDER
  10. IBUPROFEN [Concomitant]
     Indication: PAIN
     Dosage: 800 MG, UNK
  11. MOTRIN [Concomitant]
     Indication: PAIN
     Dosage: 800 MG, UNK
  12. LAMOTRIGINE [Concomitant]
     Indication: AFFECTIVE DISORDER
     Dosage: 25 MG, UNK
  13. LAMICTAL [Concomitant]
     Indication: AFFECTIVE DISORDER
     Dosage: 25 MG, UNK
  14. IRON [Concomitant]
     Indication: SUPPLEMENTATION THERAPY
     Dosage: 45 MG, UNK
  15. PRILOSEC [Concomitant]
     Indication: GASTROOESOPHAGEAL REFLUX DISEASE
     Dosage: 20 MG, UNK
  16. ZYRTEC [Concomitant]
     Indication: HYPERSENSITIVITY

REACTIONS (5)
  - Pulmonary embolism [Recovered/Resolved]
  - Renal vein thrombosis [None]
  - Pelvic venous thrombosis [None]
  - Deep vein thrombosis [None]
  - Thrombophlebitis superficial [None]
